FAERS Safety Report 8046353-7 (Version None)
Quarter: 2012Q1

REPORT INFORMATION
  Report Type: 
  Country: None (occurrence: None)
  Receive Date: 20120113
  Receipt Date: 20120112
  Transmission Date: 20120608
  Serious: No
  Sender: FDA-Public Use
  Company Number: US-PFIZER INC-2012002243

PATIENT
  Sex: Female

DRUGS (2)
  1. LYRICA [Suspect]
     Indication: TRIGEMINAL NEURALGIA
     Dosage: UNK
     Route: 048
  2. LYRICA [Suspect]
     Dosage: 50 MG, TWO OR THREE TIMES A DAY
     Route: 048

REACTIONS (1)
  - DYSPHAGIA [None]
